FAERS Safety Report 6900893-X (Version None)
Quarter: 2010Q3

REPORT INFORMATION
  Report Type: 
  Country: None (occurrence: None)
  Receive Date: 20100803
  Receipt Date: 20100722
  Transmission Date: 20110219
  Serious: Yes (Hospitalization)
  Sender: FDA-Public Use
  Company Number: A0867525A

PATIENT
  Age: 59 Year
  Sex: Female
  Weight: 65.5 kg

DRUGS (8)
  1. AVANDIA [Suspect]
     Dosage: 8MG PER DAY
     Route: 048
     Dates: start: 19860101, end: 20070101
  2. NORVASC [Concomitant]
  3. VOLTAREN [Concomitant]
  4. FLEXERIL [Concomitant]
  5. COREG [Concomitant]
  6. LISINOPRIL AND HYDROCHLOROTHIAZIDE [Concomitant]
  7. TAPAZOLE [Concomitant]
  8. SIMVASTATIN [Concomitant]

REACTIONS (1)
  - CEREBROVASCULAR ACCIDENT [None]
